FAERS Safety Report 4357325-8 (Version None)
Quarter: 2004Q2

REPORT INFORMATION
  Report Type: 
  Country: None (occurrence: None)
  Receive Date: 20040507
  Receipt Date: 20040503
  Transmission Date: 20050107
  Serious: Yes (Death)
  Sender: FDA-Public Use
  Company Number: USA-2003-0011869

PATIENT
  Age: 81 Year
  Sex: Female
  Weight: 68 kg

DRUGS (3)
  1. MORPHINE SULFATE [Suspect]
  2. APAP W/CODEINE (CODEINE PHOSPHATE, PARACETAMOL) [Suspect]
  3. DILTIAZEM [Suspect]

REACTIONS (3)
  - COMPLETED SUICIDE [None]
  - INJURY ASPHYXIATION [None]
  - MULTIPLE DRUG OVERDOSE [None]
